FAERS Safety Report 6595051-5 (Version None)
Quarter: 2010Q1

REPORT INFORMATION
  Report Type: 
  Country: None (occurrence: None)
  Receive Date: 20100222
  Receipt Date: 20100212
  Transmission Date: 20100710
  Serious: Yes (Death)
  Sender: FDA-Public Use
  Company Number: US-ABBOTT-10P-163-0626756-00

PATIENT
  Age: 32 Year
  Sex: Female

DRUGS (4)
  1. ACETAMINOPHEN AND HYDROCODONE BITARTRATE [Suspect]
     Indication: DRUG USE FOR UNKNOWN INDICATION
     Dosage: INGESTION
  2. CLONAZEPAM [Suspect]
     Indication: DRUG USE FOR UNKNOWN INDICATION
     Dosage: INGESTION
  3. SALICYLATE [Suspect]
     Indication: DRUG USE FOR UNKNOWN INDICATION
     Dosage: INGESTION
  4. ETHANOL [Suspect]
     Indication: DRUG USE FOR UNKNOWN INDICATION
     Dosage: INGESTION

REACTIONS (1)
  - COMPLETED SUICIDE [None]
